FAERS Safety Report 8194647-7 (Version None)
Quarter: 2012Q1

REPORT INFORMATION
  Report Type: 
  Country: None (occurrence: None)
  Receive Date: 20120308
  Receipt Date: 20111213
  Transmission Date: 20120608
  Serious: No
  Sender: FDA-Public Use
  Company Number: US-GLAXOSMITHKLINE-A0957945A

PATIENT
  Age: 39 Year
  Sex: Female

DRUGS (2)
  1. NICORETTE [Suspect]
     Indication: EX-TOBACCO USER
  2. NICOTINE POLACRILEX [Suspect]
     Indication: EX-TOBACCO USER
     Dates: start: 20110701

REACTIONS (3)
  - NICOTINE DEPENDENCE [None]
  - ALOPECIA [None]
  - DRUG ADMINISTRATION ERROR [None]
